FAERS Safety Report 11163851 (Version 1)
Quarter: 2015Q2

REPORT INFORMATION
  Report Type: Spontaneous
  Country: US (occurrence: None)
  Receive Date: 20150603
  Receipt Date: 20150603
  Transmission Date: 20150821
  Serious: Yes (Hospitalization)
  Sender: FDA-Public Use
  Company Number: None

PATIENT
  Age: 39 Year
  Sex: Male
  Weight: 62.1 kg

DRUGS (1)
  1. MINOXIDIL. [Suspect]
     Active Substance: MINOXIDIL
     Indication: CARDIAC OPERATION
     Route: 048
     Dates: start: 20080609, end: 20140804

REACTIONS (2)
  - Swelling [None]
  - Pericardial effusion [None]

NARRATIVE: CASE EVENT DATE: 20140804
